FAERS Safety Report 5109140-5 (Version None)
Quarter: 2006Q3

REPORT INFORMATION
  Report Type: 
  Country: None (occurrence: None)
  Receive Date: 20060918
  Receipt Date: 20060829
  Transmission Date: 20061208
  Serious: No
  Sender: FDA-Public Use
  Company Number: US200608006848

PATIENT
  Age: 40 Year
  Sex: Female

DRUGS (2)
  1. CYMBALTA [Suspect]
     Indication: DEPRESSION
     Dosage: 30 MG
  2. WELLBUTRIN [Concomitant]

REACTIONS (1)
  - HEPATIC ENZYME INCREASED [None]
